FAERS Safety Report 8958269 (Version 1)
Quarter: 2012Q4

REPORT INFORMATION
  Report Type: 
  Country: US (occurrence: US)
  Receive Date: 20121211
  Receipt Date: 20121211
  Transmission Date: 20130627
  Serious: Yes (Hospitalization)
  Sender: FDA-Public Use
  Company Number: US-ELI_LILLY_AND_COMPANY-US201102004991

PATIENT
  Age: 60 Year
  Sex: Female

DRUGS (4)
  1. FORTEO [Suspect]
     Indication: OSTEOPOROSIS
     Dosage: 20 ug, daily (1/D)
     Route: 058
     Dates: start: 20110210, end: 20110213
  2. FORTEO [Suspect]
     Dosage: 20 ug, daily (1/D)
     Route: 058
     Dates: start: 20110215
  3. FORTEO [Suspect]
     Dosage: 20 ug, daily (1/D)
     Route: 058
     Dates: end: 201103
  4. FORTEO [Suspect]
     Dosage: 20 ug, qd
     Route: 058

REACTIONS (6)
  - Knee arthroplasty [Unknown]
  - Blood pressure abnormal [Unknown]
  - Nausea [Recovered/Resolved]
  - Nausea [Unknown]
  - Drug dose omission [Unknown]
  - Intentional drug misuse [Unknown]
